FAERS Safety Report 9014373 (Version 1)
Quarter: 2013Q1

REPORT INFORMATION
  Report Type: Spontaneous
  Country: US (occurrence: US)
  Receive Date: 20130115
  Receipt Date: 20130115
  Transmission Date: 20140127
  Serious: No
  Sender: FDA-Public Use
  Company Number: US-PFIZER INC-2013014894

PATIENT
  Age: 57 Year
  Sex: Female
  Weight: 49.89 kg

DRUGS (2)
  1. CHANTIX [Suspect]
     Indication: SMOKING CESSATION THERAPY
     Dosage: UNK
     Dates: start: 2012, end: 2012
  2. CYMBALTA [Concomitant]
     Indication: FIBROMYALGIA
     Dosage: 60 MG, DAILY

REACTIONS (3)
  - Nausea [Unknown]
  - Abnormal dreams [Unknown]
  - Malaise [Unknown]
